FAERS Safety Report 16786164 (Version 1)
Quarter: 2019Q3

REPORT INFORMATION
  Report Type: Spontaneous
  Country: JP (occurrence: JP)
  Receive Date: 20190909
  Receipt Date: 20190909
  Transmission Date: 20191005
  Serious: Yes (Other)
  Sender: FDA-Public Use
  Company Number: JP-SA-2019SA185379

PATIENT
  Age: 64 Year
  Sex: Male

DRUGS (10)
  1. PACLITAXEL. [Suspect]
     Active Substance: PACLITAXEL
     Dosage: PTX 80 MG/M2 = 130 MG
  2. PACLITAXEL. [Suspect]
     Active Substance: PACLITAXEL
     Dosage: 40 MG/M2 = 65 MG
  3. GIMERACIL;OTERACIL;TEGAFUR [Suspect]
     Active Substance: GIMERACIL\OTERACIL\TEGAFUR
     Indication: GASTRIC CANCER
     Dosage: 80 UNK
  4. PACLITAXEL. [Suspect]
     Active Substance: PACLITAXEL
     Dosage: 30 MG/M2 = 50 MG
  5. RAMUCIRUMAB [Suspect]
     Active Substance: RAMUCIRUMAB
     Dosage: 8 MG/KG = 520 MG
  6. OXALIPLATIN. [Suspect]
     Active Substance: OXALIPLATIN
     Indication: GASTRIC CANCER
     Dosage: (75 MG/M2 = 100 MG)
  7. OXALIPLATIN. [Suspect]
     Active Substance: OXALIPLATIN
     Dosage: S-1 (120 MG/DAY) AND OXALIPLATIN (L-OHP 100 MG/M2 = 150 MG) WERE ADMINISTERED FROM THE SECOND COURSE
  8. GIMERACIL;OTERACIL;TEGAFUR [Suspect]
     Active Substance: GIMERACIL\OTERACIL\TEGAFUR
     Indication: METASTASES TO PERITONEUM
     Dosage: NLY S-1 (120 MG/DAY) WAS ADMINISTERED IN THE FIRST COURSE
  9. GIMERACIL;OTERACIL;TEGAFUR [Suspect]
     Active Substance: GIMERACIL\OTERACIL\TEGAFUR
     Dosage: S-1 (120 MG/DAY) AND OXALIPLATIN (L-OHP 100 MG/M2 = 150 MG) WERE ADMINISTERED FROM THE SECOND COURSE
  10. PACLITAXEL. [Suspect]
     Active Substance: PACLITAXEL
     Dosage: 60 MG/M2 = 100 MG

REACTIONS (4)
  - Product use issue [Unknown]
  - Haematotoxicity [Recovered/Resolved]
  - Neuropathy peripheral [Not Recovered/Not Resolved]
  - Malaise [Recovering/Resolving]

NARRATIVE: CASE EVENT DATE: 2016
